FAERS Safety Report 8492949-8 (Version None)
Quarter: 2012Q3

REPORT INFORMATION
  Report Type: 
  Country: None (occurrence: None)
  Receive Date: 20120706
  Receipt Date: 20120614
  Transmission Date: 20120928
  Serious: Yes (Hospitalization)
  Sender: FDA-Public Use
  Company Number: TW-GLAXOSMITHKLINE-B0809119A

PATIENT
  Age: 45 Year
  Sex: Male
  Weight: 58 kg

DRUGS (4)
  1. DEXTROMETHORPHAN HYDROBROMIDE [Concomitant]
  2. METFORMIN HCL [Suspect]
     Indication: PRODUCT USED FOR UNKNOWN INDICATION
     Route: 065
  3. AVANDAMET [Suspect]
     Indication: TYPE 2 DIABETES MELLITUS
     Route: 065
  4. FONING [Concomitant]

REACTIONS (5)
  - PNEUMONIA [None]
  - PYREXIA [None]
  - RHINORRHOEA [None]
  - PRODUCTIVE COUGH [None]
  - OROPHARYNGEAL PAIN [None]
